FAERS Safety Report 8904418 (Version 1)
Quarter: 2012Q4

REPORT INFORMATION
  Report Type: 
  Country: US (occurrence: US)
  Receive Date: 20121112
  Receipt Date: 20121112
  Transmission Date: 20130627
  Serious: Yes (Other)
  Sender: FDA-Public Use
  Company Number: US-009507513-1111USA02503

PATIENT

DRUGS (1)
  1. FOSAMAX [Suspect]
     Route: 048
     Dates: start: 2001, end: 20101108

REACTIONS (3)
  - Atypical femur fracture [Unknown]
  - Osteonecrosis of jaw [Unknown]
  - Atypical femur fracture [Unknown]
